FAERS Safety Report 4800791-1 (Version None)
Quarter: 2005Q3

REPORT INFORMATION
  Report Type: 
  Country: None (occurrence: None)
  Receive Date: 20050929
  Receipt Date: 20050720
  Transmission Date: 20060218
  Serious: No
  Sender: FDA-Public Use
  Company Number: 05P-163-0306479-00

PATIENT
  Age: 78 Year
  Sex: Female

DRUGS (5)
  1. HUMIRA [Suspect]
     Indication: RHEUMATOID ARTHRITIS
     Dosage: 40 MG, 1 IN 2 WK, SUBCUTANEOUS
     Route: 058
     Dates: start: 20030101, end: 20050627
  2. ESTROGENS CONJUGATED [Concomitant]
  3. POTASSIUM [Concomitant]
  4. SERTRALINE HYDROCHLORIDE [Concomitant]
  5. FOLIC ACID [Concomitant]

REACTIONS (2)
  - BRONCHITIS [None]
  - SINUSITIS [None]
